FAERS Safety Report 6603355-2 (Version None)
Quarter: 2010Q1

REPORT INFORMATION
  Report Type: 
  Country: None (occurrence: None)
  Receive Date: 20100226
  Receipt Date: 20090305
  Transmission Date: 20100710
  Serious: No
  Sender: FDA-Public Use
  Company Number: A0770224A

PATIENT
  Age: 51 Year
  Sex: Female

DRUGS (9)
  1. VALTREX [Suspect]
     Dosage: 1G PER DAY
     Route: 048
  2. HYDROCORTISONE [Concomitant]
  3. ZOLOFT [Concomitant]
  4. IMMUNE GLOBULIN INTRAVENOUS (HUMAN) [Concomitant]
  5. LISINOPRIL [Concomitant]
  6. METFORMIN HCL [Concomitant]
  7. OXYCONTIN [Concomitant]
  8. ADVAIR DISKUS 100/50 [Concomitant]
  9. SPIRIVA [Concomitant]

REACTIONS (2)
  - ABDOMINAL PAIN UPPER [None]
  - ALOPECIA [None]
